FAERS Safety Report 6205209-2 (Version None)
Quarter: 2009Q2

REPORT INFORMATION
  Report Type: 
  Country: None (occurrence: None)
  Receive Date: 20090527
  Receipt Date: 20090226
  Transmission Date: 20091009
  Serious: No
  Sender: FDA-Public Use
  Company Number: US-ABBOTT-09P-163-0560092-00

PATIENT
  Sex: Female
  Weight: 76.726 kg

DRUGS (4)
  1. SIMCOR [Suspect]
     Indication: BLOOD CHOLESTEROL INCREASED
     Dosage: 500/20MG
     Route: 048
     Dates: start: 20081126
  2. ATENOLOL [Concomitant]
     Indication: HYPERTENSION
     Route: 048
  3. AVALIDE [Concomitant]
     Indication: HYPERTENSION
     Dosage: 300-25 MG
     Route: 048
  4. LEXAPRO [Concomitant]
     Indication: ANXIOLYTIC THERAPY
     Route: 048

REACTIONS (3)
  - FLUSHING [None]
  - INITIAL INSOMNIA [None]
  - PAIN IN EXTREMITY [None]
